FAERS Safety Report 20690080 (Version 4)
Quarter: 2022Q2

REPORT INFORMATION
  Report Type: Spontaneous
  Country: US (occurrence: US)
  Receive Date: 20220408
  Receipt Date: 20220421
  Transmission Date: 20220721
  Serious: Yes (Other)
  Sender: FDA-Public Use
  Company Number: US-GLAXOSMITHKLINE-US2022AMR061754

PATIENT
  Age: 9 Year
  Sex: Male
  Weight: 52.789 kg

DRUGS (2)
  1. NUCALA [Suspect]
     Active Substance: MEPOLIZUMAB
     Indication: Asthma
     Dosage: 40 MG
     Route: 042
     Dates: start: 20220406, end: 20220406
  2. DULERA [Suspect]
     Active Substance: FORMOTEROL FUMARATE DIHYDRATE\MOMETASONE FUROATE
     Indication: Asthma
     Dosage: 2 PUFF(S), BID, 200/5 UG
     Route: 055

REACTIONS (12)
  - Wheezing [Recovered/Resolved]
  - Swelling [Recovered/Resolved]
  - Urticaria [Recovered/Resolved]
  - Hypersensitivity [Recovered/Resolved]
  - Dyspnoea [Recovered/Resolved]
  - Drooling [Recovered/Resolved]
  - Swollen tongue [Recovered/Resolved]
  - Throat irritation [Unknown]
  - Tongue pruritus [Unknown]
  - Cough [Unknown]
  - Blood pressure abnormal [Unknown]
  - Oxygen saturation abnormal [Recovering/Resolving]

NARRATIVE: CASE EVENT DATE: 20220406
